FAERS Safety Report 25622781 (Version 4)
Quarter: 2025Q3

REPORT INFORMATION
  Report Type: Spontaneous
  Country: JP (occurrence: JP)
  Receive Date: 20250730
  Receipt Date: 20250903
  Transmission Date: 20251021
  Serious: Yes (Hospitalization, Other)
  Sender: UCB
  Company Number: JP-UCBJ-CD202509789UCBPHAPROD

PATIENT
  Age: 0 Year
  Sex: Female
  Weight: 2.828 kg

DRUGS (2)
  1. CIMZIA [Suspect]
     Active Substance: CERTOLIZUMAB PEGOL
     Indication: Rheumatoid arthritis
     Dosage: 200 MILLIGRAM, EV 2 WEEKS(QOW)
     Route: 064
     Dates: start: 20211116
  2. CIMZIA [Suspect]
     Active Substance: CERTOLIZUMAB PEGOL
     Indication: Juvenile idiopathic arthritis
     Dosage: 200 MILLIGRAM, EV 2 WEEKS(QOW)
     Route: 063
     Dates: start: 20211116

REACTIONS (5)
  - Neonatal infection [Recovered/Resolved]
  - Pulmonary artery stenosis [Recovering/Resolving]
  - Maternal exposure before pregnancy [Unknown]
  - Maternal exposure during pregnancy [Unknown]
  - Maternal exposure during breast feeding [Unknown]

NARRATIVE: CASE EVENT DATE: 20240301
